FAERS Safety Report 7476625-6 (Version None)
Quarter: 2011Q2

REPORT INFORMATION
  Report Type: 
  Country: None (occurrence: None)
  Receive Date: 20110512
  Receipt Date: 20110509
  Transmission Date: 20111010
  Serious: Yes (Hospitalization)
  Sender: FDA-Public Use
  Company Number: US-ASTRAZENECA-2011SE23098

PATIENT
  Age: 29613 Day
  Sex: Female
  Weight: 64.4 kg

DRUGS (18)
  1. LASIX [Concomitant]
  2. LANTUS [Concomitant]
  3. ATACAND [Suspect]
     Indication: HYPERTENSION
     Route: 048
     Dates: start: 20090107
  4. CADUET [Suspect]
     Indication: HYPERTENSION
     Route: 048
     Dates: start: 20081206
  5. COREG [Concomitant]
  6. DOXAZOSIN MESYLATE [Concomitant]
  7. MULTI-VITAMINS [Concomitant]
  8. SPIRONOLACTONE [Concomitant]
  9. PLAVIX [Concomitant]
  10. RANITIDINE [Concomitant]
  11. MULTIVITAMIN W MINERAL [Concomitant]
  12. STUDY PROCEDURE [Suspect]
     Indication: HYPERTENSION
  13. ASPIRIN [Concomitant]
  14. FISH OIL [Concomitant]
  15. NOVOLIN 70/30 [Concomitant]
  16. CALCIUM W/VITAMIN D [Concomitant]
  17. FENOFIBRATE [Concomitant]
  18. ACETAMINOPHEN [Concomitant]

REACTIONS (3)
  - HYPERCALCAEMIA [None]
  - RENAL FAILURE ACUTE [None]
  - DEHYDRATION [None]
